FAERS Safety Report 9386655 (Version 1)
Quarter: 2013Q3

REPORT INFORMATION
  Report Type: Report from Study
  Country: CA (occurrence: CA)
  Receive Date: 20130708
  Receipt Date: 20130708
  Transmission Date: 20140515
  Serious: Yes (Hospitalization)
  Sender: FDA-Public Use
  Company Number: PHHY2013CA071530

PATIENT
  Sex: Female

DRUGS (1)
  1. SANDOSTATIN LAR [Suspect]
     Indication: GALLBLADDER CANCER
     Dosage: 20 MG, ONCE A MONTH
     Route: 030
     Dates: start: 20130603, end: 20130603

REACTIONS (1)
  - Feeling abnormal [Unknown]
